FAERS Safety Report 22535935 (Version 2)
Quarter: 2023Q2

REPORT INFORMATION
  Report Type: Spontaneous
  Country: US (occurrence: US)
  Receive Date: 20230608
  Receipt Date: 20230622
  Transmission Date: 20230721
  Serious: Yes (Hospitalization, Other)
  Sender: FDA-Public Use
  Company Number: US-TEVA-2023-US-2893303

PATIENT
  Age: 44 Year
  Sex: Male

DRUGS (19)
  1. BUPRENORPHINE [Suspect]
     Active Substance: BUPRENORPHINE
     Indication: Drug use disorder
     Dosage: .5 MILLIGRAM DAILY; ON DAY-1 OF MICRODOSING PROTOCOL : 0.5 MG/DAY
     Route: 060
  2. BUPRENORPHINE [Suspect]
     Active Substance: BUPRENORPHINE
     Dosage: 1 MILLIGRAM DAILY; ON DAY-2: 0.5MG TWICE A DAY
     Route: 060
  3. BUPRENORPHINE [Suspect]
     Active Substance: BUPRENORPHINE
     Dosage: 2 MILLIGRAM DAILY; ON DAY-3: 1MG TWICE A DAY
     Route: 060
  4. BUPRENORPHINE [Suspect]
     Active Substance: BUPRENORPHINE
     Dosage: 4 MILLIGRAM DAILY; ON DAY-4: 2MG TWICE A DAY
     Route: 060
  5. BUPRENORPHINE [Suspect]
     Active Substance: BUPRENORPHINE
     Dosage: 6 MILLIGRAM DAILY; ON DAY-5: 3MG TWICE A DAY
     Route: 060
  6. BUPRENORPHINE [Suspect]
     Active Substance: BUPRENORPHINE
     Dosage: 8 MILLIGRAM DAILY; ON DAY-6: 4MG TWICE A DAY
     Route: 060
  7. BUPRENORPHINE [Suspect]
     Active Substance: BUPRENORPHINE
     Dosage: 12 MILLIGRAM DAILY; ON DAY-7: 6MG TWICE A DAY
     Route: 060
  8. BUPRENORPHINE [Suspect]
     Active Substance: BUPRENORPHINE
     Dosage: 16 MILLIGRAM DAILY; ON DAY-8: 8MG TWICE A DAY
     Route: 060
  9. METHADONE [Interacting]
     Active Substance: METHADONE HYDROCHLORIDE
     Indication: Drug use disorder
     Dosage: 100 MILLIGRAM DAILY;
     Route: 065
  10. PHENOBARBITAL [Interacting]
     Active Substance: PHENOBARBITAL
     Indication: Alcohol withdrawal syndrome
     Route: 065
  11. METHAMPHETAMINE [Suspect]
     Active Substance: METHAMPHETAMINE
     Indication: Substance use
     Route: 065
  12. GABAPENTIN [Concomitant]
     Active Substance: GABAPENTIN
     Indication: Product used for unknown indication
     Route: 065
  13. AMITRIPTYLINE [Concomitant]
     Active Substance: AMITRIPTYLINE
     Indication: Product used for unknown indication
     Route: 065
  14. OMEPRAZOLE [Concomitant]
     Active Substance: OMEPRAZOLE
     Indication: Product used for unknown indication
     Route: 065
  15. ACETAMINOPHEN [Concomitant]
     Active Substance: ACETAMINOPHEN
     Indication: Drug therapy
     Dosage: 650 MILLIGRAM DAILY; ONCE A DAY
     Route: 048
  16. IBUPROFEN [Concomitant]
     Active Substance: IBUPROFEN
     Indication: Drug therapy
     Dosage: 600 MILLIGRAM DAILY; ONCE A DAY
     Route: 048
  17. CYCLOBENZAPRINE [Concomitant]
     Active Substance: CYCLOBENZAPRINE
     Indication: Drug therapy
     Dosage: 20 MILLIGRAM DAILY; 10MG TWICE A DAY
     Route: 048
  18. CLONIDINE [Concomitant]
     Active Substance: CLONIDINE
     Indication: Drug therapy
     Dosage: .3 MILLIGRAM DAILY; 0.1MG THRICE A DAY
     Route: 048
  19. ONDANSETRON [Concomitant]
     Active Substance: ONDANSETRON
     Indication: Drug therapy
     Dosage: 4 MILLIGRAM DAILY; ONCE A DAY
     Route: 048

REACTIONS (5)
  - Substance use disorder [Unknown]
  - Withdrawal syndrome [Recovered/Resolved]
  - Drug interaction [Unknown]
  - Drug ineffective [Unknown]
  - Off label use [Unknown]
